FAERS Safety Report 6581507-8 (Version None)
Quarter: 2010Q1

REPORT INFORMATION
  Report Type: 
  Country: None (occurrence: None)
  Receive Date: 20100215
  Receipt Date: 20100208
  Transmission Date: 20100710
  Serious: Yes (Other)
  Sender: FDA-Public Use
  Company Number: B0633414A

PATIENT
  Age: 53 Year
  Sex: Female

DRUGS (1)
  1. SERETIDE [Suspect]
     Indication: ASTHMA
     Dosage: 1U TWICE PER DAY
     Route: 055
     Dates: start: 20091125, end: 20091125

REACTIONS (2)
  - TACHYCARDIA [None]
  - TREMOR [None]
